FAERS Safety Report 12828699 (Version 14)
Quarter: 2020Q1

REPORT INFORMATION
  Report Type: Report from Study
  Country: US (occurrence: US)
  Receive Date: 20161007
  Receipt Date: 20200330
  Transmission Date: 20200409
  Serious: Yes (Hospitalization, Other)
  Sender: FDA-Public Use
  Company Number: US-SA-2015SA220295

PATIENT
  Age: 51 Year
  Sex: Female

DRUGS (15)
  1. TERIFLUNOMIDE. [Suspect]
     Active Substance: TERIFLUNOMIDE
     Dosage: 1 DF, QD
     Route: 048
     Dates: start: 20131224
  2. TERIFLUNOMIDE. [Suspect]
     Active Substance: TERIFLUNOMIDE
     Dosage: 14 MG, QD
     Route: 048
     Dates: start: 20140417
  3. TERIFLUNOMIDE. [Suspect]
     Active Substance: TERIFLUNOMIDE
     Dosage: 14 MG, QD
     Route: 048
     Dates: start: 20140726
  4. TERIFLUNOMIDE. [Suspect]
     Active Substance: TERIFLUNOMIDE
     Dosage: 1 DF, QD
     Route: 048
     Dates: start: 20151215
  5. TERIFLUNOMIDE. [Suspect]
     Active Substance: TERIFLUNOMIDE
     Dosage: 14 MG, QD
     Route: 048
  6. AMPYRA [Concomitant]
     Active Substance: DALFAMPRIDINE
     Dosage: UNK
  7. DALFAMPRIDINE. [Concomitant]
     Active Substance: DALFAMPRIDINE
     Dosage: UNK
  8. TERIFLUNOMIDE. [Suspect]
     Active Substance: TERIFLUNOMIDE
     Indication: MULTIPLE SCLEROSIS
     Dosage: 14 MG, QD
     Route: 048
     Dates: start: 20131218
  9. TERIFLUNOMIDE. [Suspect]
     Active Substance: TERIFLUNOMIDE
     Dosage: 14 MG, QD
     Route: 048
     Dates: start: 20140222
  10. TERIFLUNOMIDE. [Suspect]
     Active Substance: TERIFLUNOMIDE
     Dosage: 14 MG, QD
     Route: 048
     Dates: start: 20131221
  11. TERIFLUNOMIDE. [Suspect]
     Active Substance: TERIFLUNOMIDE
     Dosage: 14 MG, QD
     Route: 048
     Dates: start: 20170315, end: 201708
  12. TERIFLUNOMIDE. [Suspect]
     Active Substance: TERIFLUNOMIDE
     Dosage: 14 MG, QD
     Route: 048
     Dates: start: 2017
  13. TERIFLUNOMIDE. [Suspect]
     Active Substance: TERIFLUNOMIDE
     Dosage: 14 MG, QD
     Route: 048
     Dates: start: 20131220
  14. ERGOCALCIFEROL. [Concomitant]
     Active Substance: ERGOCALCIFEROL
     Dosage: UNK
  15. NORCO [Concomitant]
     Active Substance: ACETAMINOPHEN\HYDROCODONE BITARTRATE
     Dosage: UNK

REACTIONS (17)
  - Blood cholesterol abnormal [Unknown]
  - Multiple sclerosis relapse [Unknown]
  - Infection [Unknown]
  - Product dose omission [Unknown]
  - Multiple sclerosis relapse [Unknown]
  - Nasopharyngitis [Not Recovered/Not Resolved]
  - Neuralgia [Unknown]
  - Hypertonic bladder [Unknown]
  - Fall [Unknown]
  - Bronchitis [Not Recovered/Not Resolved]
  - Hepatomegaly [Unknown]
  - Musculoskeletal stiffness [Unknown]
  - Movement disorder [Unknown]
  - Nausea [Not Recovered/Not Resolved]
  - Joint stiffness [Unknown]
  - Malaise [Unknown]
  - Hepatic enzyme increased [Unknown]

NARRATIVE: CASE EVENT DATE: 2016
